FAERS Safety Report 4384744-6 (Version None)
Quarter: 2004Q2

REPORT INFORMATION
  Report Type: 
  Country: None (occurrence: None)
  Receive Date: 20040625
  Receipt Date: 20040205
  Transmission Date: 20050107
  Serious: Yes (Death, Hospitalization)
  Sender: FDA-Public Use
  Company Number: 200410516JP

PATIENT
  Age: 78 Year
  Sex: Female
  Weight: 44.2 kg

DRUGS (5)
  1. ARAVA [Suspect]
     Indication: RHEUMATOID ARTHRITIS
     Route: 048
     Dates: start: 20031015, end: 20040107
  2. PREDONINE [Concomitant]
     Indication: RHEUMATOID ARTHRITIS
     Route: 048
  3. NEORAL [Concomitant]
     Indication: RHEUMATOID ARTHRITIS
     Route: 048
     Dates: end: 20031015
  4. SELBEX [Concomitant]
     Indication: ANTACID THERAPY
     Route: 048
     Dates: start: 20030820
  5. BENET [Concomitant]
     Indication: OSTEOPOROSIS
     Route: 048

REACTIONS (5)
  - ANOREXIA [None]
  - ERYTHEMA [None]
  - PNEUMONIA [None]
  - PULMONARY TUBERCULOSIS [None]
  - TINEA BLANCA [None]
